FAERS Safety Report 15661013 (Version 1)
Quarter: 2018Q4

REPORT INFORMATION
  Report Type: Spontaneous
  Country: US (occurrence: US)
  Receive Date: 20181127
  Receipt Date: 20181127
  Transmission Date: 20190205
  Serious: No
  Sender: FDA-Public Use
  Company Number: US-KYOWAKIRIN-2018BKK008694

PATIENT

DRUGS (1)
  1. POTELIGEO [Suspect]
     Active Substance: MOGAMULIZUMAB-KPKC
     Indication: MYCOSIS FUNGOIDES
     Dosage: 80 MG, UNKNOWN (4 VIALS, 1MG/KG)
     Route: 042
     Dates: start: 20181023

REACTIONS (2)
  - Chills [Unknown]
  - Pyrexia [Unknown]

NARRATIVE: CASE EVENT DATE: 20181023
